FAERS Safety Report 7808224-8 (Version None)
Quarter: 2011Q4

REPORT INFORMATION
  Report Type: 
  Country: None (occurrence: None)
  Receive Date: 20111011
  Receipt Date: 20111004
  Transmission Date: 20120403
  Serious: Yes (Hospitalization, Other)
  Sender: FDA-Public Use
  Company Number: DE-AMGEN-DEUSP2011049657

PATIENT
  Age: 65 Year
  Sex: Male
  Weight: 130 kg

DRUGS (5)
  1. SYMBIOFLOR                         /00519401/ [Concomitant]
  2. CINACALCET HYDROCHLORIDE [Suspect]
     Dosage: 60 MG, UNK
  3. PANGROL                            /00014701/ [Concomitant]
  4. ANTIBIOTICS [Concomitant]
  5. CINACALCET HYDROCHLORIDE [Suspect]
     Indication: HYPERPARATHYROIDISM SECONDARY
     Dosage: 30 MG, UNK

REACTIONS (8)
  - GASTRIC ULCER [None]
  - HEPATIC STEATOSIS [None]
  - DUODENITIS [None]
  - DIARRHOEA [None]
  - HERNIA [None]
  - RENAL CYST [None]
  - GASTRITIS [None]
  - GASTROINTESTINAL HYPOMOTILITY [None]
